FAERS Safety Report 5836717-1 (Version None)
Quarter: 2008Q3

REPORT INFORMATION
  Report Type: 
  Country: None (occurrence: None)
  Receive Date: 20080806
  Receipt Date: 20080806
  Transmission Date: 20090109
  Serious: No
  Sender: FDA-Public Use
  Company Number: None

PATIENT
  Age: 51 Year
  Sex: Female
  Weight: 54.4316 kg

DRUGS (1)
  1. BUPROPION HCL 75 MG TEVA USA [Suspect]
     Indication: DEPRESSION
     Dosage: 150 MG IN MORNING; 75 MG 2 PM DAILY PO
     Route: 048
     Dates: start: 20080716, end: 20080806

REACTIONS (7)
  - ABNORMAL BEHAVIOUR [None]
  - DECREASED INTEREST [None]
  - DEPRESSION [None]
  - DYSGEUSIA [None]
  - PAROSMIA [None]
  - PHARMACEUTICAL PRODUCT COMPLAINT [None]
  - SLEEP DISORDER [None]
